FAERS Safety Report 9710383 (Version 1)
Quarter: 2013Q4

REPORT INFORMATION
  Report Type: Spontaneous
  Country: JP (occurrence: JP)
  Receive Date: 20131126
  Receipt Date: 20131126
  Transmission Date: 20140711
  Serious: Yes (Other)
  Sender: FDA-Public Use
  Company Number: JP-ELI_LILLY_AND_COMPANY-JP201311004816

PATIENT
  Age: 41 Year
  Sex: Male

DRUGS (2)
  1. HUMATROPE [Suspect]
     Indication: GROWTH HORMONE DEFICIENCY
     Dosage: UNK
     Route: 058
     Dates: start: 200909, end: 2012
  2. HUMATROPE [Suspect]
     Dosage: UNK
     Route: 058
     Dates: start: 2012, end: 201210

REACTIONS (1)
  - Neoplasm [Recovering/Resolving]
